FAERS Safety Report 7078662-2 (Version None)
Quarter: 2010Q4

REPORT INFORMATION
  Report Type: 
  Country: None (occurrence: None)
  Receive Date: 20101102
  Receipt Date: 20101029
  Transmission Date: 20110411
  Serious: Yes (Death)
  Sender: FDA-Public Use
  Company Number: CN-ASTRAZENECA-2010SE51639

PATIENT
  Age: 80 Year
  Sex: Male

DRUGS (1)
  1. DIPRIVAN [Suspect]
     Indication: OESOPHAGOSCOPY
     Route: 042

REACTIONS (1)
  - MYOCARDIAL INFARCTION [None]
